FAERS Safety Report 8325370-3 (Version None)
Quarter: 2012Q2

REPORT INFORMATION
  Report Type: 
  Country: None (occurrence: None)
  Receive Date: 20120501
  Receipt Date: 20100313
  Transmission Date: 20120825
  Serious: No
  Sender: FDA-Public Use
  Company Number: US-TEVA-2010002159

PATIENT
  Sex: Female
  Weight: 69.008 kg

DRUGS (12)
  1. LEVOTHYROXINE SODIUM [Concomitant]
  2. PLAVIX [Concomitant]
     Dates: start: 20020101
  3. ACIPHEX [Concomitant]
     Dates: start: 20090101
  4. TRIAMETERENE [Concomitant]
     Dates: start: 19980101
  5. EFFEXOR [Concomitant]
     Dates: start: 20050101
  6. HYOSCYAMINE [Concomitant]
     Dates: start: 20050101
  7. ATENOLOL [Concomitant]
     Dates: start: 19980101
  8. DIAZEPAM [Concomitant]
  9. CALCIUM WITH D [Concomitant]
  10. NUVIGIL [Suspect]
     Indication: DEPRESSION
     Dosage: 150 MILLIGRAM;
     Route: 048
     Dates: start: 20100101
  11. AMLODIPINE [Concomitant]
     Dates: start: 19980101
  12. ASPIRIN [Concomitant]
     Dates: start: 20020101

REACTIONS (2)
  - HEADACHE [None]
  - INSOMNIA [None]
